FAERS Safety Report 7194383 (Version 2)
Quarter: 2014Q3

REPORT INFORMATION
  Report Type: Spontaneous
  Country: US (occurrence: None)
  Receive Date: 20091112
  Receipt Date: 20140919
  Transmission Date: 20150326
  Serious: Yes (Hospitalization, Other)
  Sender: FDA-Public Use
  Company Number: 2008-04443

PATIENT
  Age: 51 Year
  Sex: Female
  Weight: 51 kg

DRUGS (26)
  1. ALEVE [Concomitant]
     Active Substance: NAPROXEN SODIUM
  2. FLEXERIL [Concomitant]
     Active Substance: CYCLOBENZAPRINE HYDROCHLORIDE
  3. OXYBUTYNIN (OXYBUTYNIN) [Concomitant]
     Active Substance: OXYBUTYNIN
  4. CYCLOPHOSPHAMIDE. [Suspect]
     Active Substance: CYCLOPHOSPHAMIDE
     Indication: MANTLE CELL LYMPHOMA
     Dosage: 300 MG/M2, OVER 3 HRS, Q 12 HRS ON DAYS 1-3, INTRAVENOUS
     Route: 042
     Dates: start: 20080414, end: 20080719
  5. VINCRISTINE SULFATE. [Suspect]
     Active Substance: VINCRISTINE SULFATE
     Indication: MANTLE CELL LYMPHOMA
     Dosage: 1 MG, ON DAY 3, IV BOLUS
     Route: 040
     Dates: start: 20080414, end: 20080718
  6. IMODIUM [Concomitant]
     Active Substance: LOPERAMIDE HYDROCHLORIDE
  7. SENOKOT [Concomitant]
     Active Substance: SENNOSIDES
  8. VELCADE [Suspect]
     Active Substance: BORTEZOMIB
     Indication: MANTLE CELL LYMPHOMA
     Dosage: 1.3 MG/M2, OVER 3-5 SEC ON DAYS 1 AND 4, IV BOLUS
     Route: 040
     Dates: start: 20080414, end: 20080719
  9. AMBIEN [Concomitant]
     Active Substance: ZOLPIDEM TARTRATE
  10. DILAUDID (HYDROMORPHONEH HYDROCHLORIDE) [Concomitant]
  11. PROVIGIL [Concomitant]
     Active Substance: MODAFINIL
  12. RITUXIMAB (RITUXIMAB) INJECTION [Suspect]
     Active Substance: RITUXIMAB
     Indication: MANTLE CELL LYMPHOMA
     Dosage: 375 MG/M2, AT 50-400 MG/HR ON DAY 1, INTRAVENOUS
     Dates: start: 20080414, end: 20080716
  13. DOXORUBICIN HYDROCHLORIDE. [Suspect]
     Active Substance: DOXORUBICIN HYDROCHLORIDE
     Indication: MANTLE CELL LYMPHOMA
     Dosage: 25 MG/M2, OVER 48 HRS ON DAYS 1-2, INTRAVENOUS
     Route: 042
     Dates: start: 20080414, end: 20080718
  14. ACYCLOVIR. [Concomitant]
     Active Substance: ACYCLOVIR
  15. MEVACOR (LOVASTATIN) [Concomitant]
  16. NYSTATIN. [Concomitant]
     Active Substance: NYSTATIN
  17. VICODIN [Concomitant]
     Active Substance: ACETAMINOPHEN\HYDROCODONE BITARTRATE
  18. DIFLUCAN [Concomitant]
     Active Substance: FLUCONAZOLE
  19. MULTI-VITAMIN [Concomitant]
     Active Substance: .ALPHA.-TOCOPHEROL ACETATE, DL-\ASCORBIC ACID\CYANOCOBALAMIN\FLUORIDE ION\FOLIC ACID\NIACIN\PYRIDOXINE\RIBOFLAVIN\THIAMINE\VITAMIN A\VITAMIN D
  20. LIDOCAINE VISCOUS (LIDOCAINE HYDROCHLORIDE) [Concomitant]
  21. CARDURA [Concomitant]
     Active Substance: DOXAZOSIN MESYLATE
  22. CIPROFLOXACIN EXTENDED-RELEASE [Concomitant]
     Active Substance: CIPROFLOXACIN\CIPROFLOXACIN HYDROCHLORIDE
  23. CYMBALTA [Concomitant]
     Active Substance: DULOXETINE HYDROCHLORIDE
  24. DEXAMETHASONE. [Suspect]
     Active Substance: DEXAMETHASONE
     Indication: MANTLE CELL LYMPHOMA
     Dosage: 40 MG, ON DAYS 1-4, ORAL
     Route: 048
     Dates: start: 20080414, end: 20080719
  25. NEULASTA [Suspect]
     Active Substance: PEGFILGRASTIM
     Indication: MANTLE CELL LYMPHOMA
     Dosage: 6 MG, ON DAY 5 OR 6, SUBCUTANEOUS
     Route: 058
     Dates: start: 20080414, end: 20080721
  26. METHADONE [Concomitant]
     Active Substance: METHADONE HYDROCHLORIDE

REACTIONS (11)
  - Troponin T increased [None]
  - Stomatitis [None]
  - Muscular weakness [None]
  - Platelet count decreased [None]
  - Haemoglobin decreased [None]
  - Oropharyngeal pain [None]
  - Laryngeal pain [None]
  - Pneumonia [None]
  - Myalgia [None]
  - Lung infection [None]
  - Febrile neutropenia [None]

NARRATIVE: CASE EVENT DATE: 200807
